FAERS Safety Report 5404443-9 (Version None)
Quarter: 2007Q3

REPORT INFORMATION
  Report Type: 
  Country: None (occurrence: None)
  Receive Date: 20070802
  Receipt Date: 20070722
  Transmission Date: 20080115
  Serious: Yes (Other)
  Sender: FDA-Public Use
  Company Number: US-PFIZER INC-2007062288

PATIENT
  Sex: Female
  Weight: 63.5 kg

DRUGS (2)
  1. CHANTIX [Suspect]
  2. ADVIL LIQUI-GELS [Concomitant]

REACTIONS (5)
  - GLOSSODYNIA [None]
  - ORAL PAIN [None]
  - PRURITUS [None]
  - STOMATITIS [None]
  - URTICARIA [None]
